FAERS Safety Report 20890367 (Version 3)
Quarter: 2022Q3

REPORT INFORMATION
  Report Type: Report from Study
  Country: US (occurrence: US)
  Receive Date: 20220530
  Receipt Date: 20220930
  Transmission Date: 20221026
  Serious: Yes (Hospitalization, Other)
  Sender: FDA-Public Use
  Company Number: US-CELGENE-USA-20220106787

PATIENT
  Age: 79 Year
  Sex: Female
  Weight: 63.5 kg

DRUGS (9)
  1. POMALYST [Suspect]
     Active Substance: POMALIDOMIDE
     Indication: Plasma cell myeloma
     Dosage: 4 MILLIGRAM?EXPIRY DATE FOR C2440A: NOT PROVIDED
     Route: 048
     Dates: start: 202101
  2. POMALYST [Suspect]
     Active Substance: POMALIDOMIDE
     Route: 065
  3. POMALYST [Suspect]
     Active Substance: POMALIDOMIDE
     Dosage: RESTARTED ON 19-SEP-2022
     Route: 065
  4. ACYCLOVIR [Concomitant]
     Active Substance: ACYCLOVIR
  5. ADVIL [Concomitant]
     Active Substance: IBUPROFEN
  6. ASPIRIN [Concomitant]
     Active Substance: ASPIRIN
     Dosage: EC
  7. CALCIUM CITRATE [Concomitant]
     Active Substance: CALCIUM CITRATE
  8. DEXAMETHASONE [Concomitant]
     Active Substance: DEXAMETHASONE
  9. VITAMIN D3 [Concomitant]
     Active Substance: CHOLECALCIFEROL

REACTIONS (6)
  - Neuropathy peripheral [Unknown]
  - Laboratory test abnormal [Unknown]
  - Bladder cancer [Unknown]
  - Fatigue [Unknown]
  - Peripheral swelling [Unknown]
  - Flushing [Unknown]

NARRATIVE: CASE EVENT DATE: 20220831
